FAERS Safety Report 7213804-7 (Version None)
Quarter: 2011Q1

REPORT INFORMATION
  Report Type: 
  Country: None (occurrence: None)
  Receive Date: 20110106
  Receipt Date: 20101224
  Transmission Date: 20110831
  Serious: Yes (Life-Threatening, Disabling)
  Sender: FDA-Public Use
  Company Number: JP-GENZYME-THYM-1002026

PATIENT
  Sex: Female
  Weight: 45 kg

DRUGS (35)
  1. URSODIOL [Concomitant]
     Indication: PROPHYLAXIS
     Dosage: UNK
     Dates: start: 20100609
  2. MYCOPHENOLATE MOFETIL [Concomitant]
     Indication: PROPHYLAXIS AGAINST GRAFT VERSUS HOST DISEASE
     Dosage: UNK
     Dates: start: 20100902
  3. DIAZEPAM [Concomitant]
     Indication: HYPERVENTILATION
     Dosage: UNK
     Dates: start: 20100908, end: 20101111
  4. IMIPENEM [Concomitant]
     Indication: INFECTION PROPHYLAXIS
     Dosage: UNK
     Dates: start: 20100626, end: 20100716
  5. THROMBOMODULIN ALFA [Concomitant]
     Indication: DISSEMINATED INTRAVASCULAR COAGULATION
     Dosage: UNK
     Dates: start: 20101201, end: 20101207
  6. ACYCLOVIR [Concomitant]
     Indication: ANTIVIRAL PROPHYLAXIS
     Dosage: UNK
     Dates: start: 20100609, end: 20100620
  7. FUROSEMIDE [Concomitant]
     Indication: OEDEMA
     Dosage: UNK
     Dates: start: 20100707, end: 20100718
  8. MICONAZOLE NITRATE [Concomitant]
     Indication: ORAL CANDIDIASIS
     Dosage: UNK
     Dates: start: 20101021, end: 20101027
  9. CEFEPIME HYDROCHLORIDE [Concomitant]
     Indication: INFECTION PROPHYLAXIS
     Dosage: UNK
     Dates: start: 20100609, end: 20100625
  10. THYMOGLOBULIN [Suspect]
     Indication: BONE MARROW CONDITIONING REGIMEN
     Dosage: 50 MG, QD
     Route: 042
     Dates: start: 20100609, end: 20100610
  11. RISPERIDONE [Concomitant]
     Indication: HYPERVENTILATION
     Dosage: UNK
     Dates: start: 20100908, end: 20101110
  12. HEPARIN [Concomitant]
     Indication: PRODUCT USED FOR UNKNOWN INDICATION
     Dosage: UNK
     Dates: start: 20100609, end: 20100713
  13. GRENOL [Concomitant]
     Indication: INTRACRANIAL HYPOTENSION
     Dosage: UNK
     Dates: start: 20101112
  14. FAMOTIDINE [Concomitant]
     Indication: PROPHYLAXIS AGAINST GASTROINTESTINAL ULCER
     Dosage: UNK
     Dates: start: 20100609, end: 20100625
  15. VORICONAZOLE [Concomitant]
     Indication: ANTIFUNGAL PROPHYLAXIS
     Dosage: UNK
     Dates: start: 20100707, end: 20100820
  16. ACYCLOVIR [Concomitant]
     Dosage: UNK
     Dates: start: 20100616, end: 20100625
  17. DOPAMINE HYDROCHLORIDE [Concomitant]
     Indication: BLOOD ANTIDIURETIC HORMONE
     Dosage: UNK
     Dates: start: 20100818, end: 20100827
  18. LANSOPRAZOLE [Concomitant]
     Indication: PROPHYLAXIS AGAINST GASTROINTESTINAL ULCER
     Dosage: UNK
     Dates: start: 20101113
  19. TACROLIMUS [Concomitant]
     Indication: PROPHYLAXIS AGAINST GRAFT VERSUS HOST DISEASE
     Dosage: UNK
     Dates: start: 20100609, end: 20100710
  20. OMEPRAZOLE [Concomitant]
     Indication: PROPHYLAXIS AGAINST GASTROINTESTINAL ULCER
     Dosage: UNK
     Dates: start: 20100116, end: 20100706
  21. ANTITHROMBIN III HUMAN [Concomitant]
     Indication: SUPPLEMENTATION THERAPY
     Dosage: UNK
     Dates: start: 20100820, end: 20100822
  22. FILGRASTIM [Concomitant]
     Indication: WHITE BLOOD CELL COUNT INCREASED
     Dosage: UNK
     Dates: start: 20100923, end: 20101001
  23. AMPHOTERICIN B [Concomitant]
     Indication: PNEUMONIA FUNGAL
     Dosage: UNK
     Dates: start: 20101213
  24. VALACICLOVIR [Concomitant]
     Indication: ANTIVIRAL PROPHYLAXIS
     Dosage: UNK
  25. CLOBAZAM [Concomitant]
     Indication: CONVULSION PROPHYLAXIS
     Dosage: UNK
     Dates: start: 20101113
  26. TACROLIMUS [Concomitant]
     Indication: PREMEDICATION
  27. FLUCONAZOLE [Concomitant]
     Indication: ANTIFUNGAL PROPHYLAXIS
     Dosage: UNK
     Dates: start: 20100609, end: 20100629
  28. ROXITHROMYCIN [Concomitant]
     Indication: ANTIBIOTIC PROPHYLAXIS
     Dosage: UNK
     Dates: start: 20100710, end: 20100825
  29. GANCICLOVIR [Concomitant]
     Indication: CYTOMEGALOVIRUS TEST POSITIVE
     Dosage: UNK
     Dates: start: 20100124, end: 20100129
  30. PHENOBARBITAL [Concomitant]
     Indication: CONVULSION PROPHYLAXIS
     Dosage: UNK
     Dates: start: 20101113
  31. LENOGRASTIM [Concomitant]
     Indication: WHITE BLOOD CELL COUNT INCREASED
     Dosage: UNK
     Dates: start: 20100616, end: 20100622
  32. MICAFUNGIN SODIUM [Concomitant]
     Indication: ANTIFUNGAL PROPHYLAXIS
     Dosage: UNK
     Dates: start: 20100616, end: 20100706
  33. TEICOPLANIN [Concomitant]
     Indication: INFECTION PROPHYLAXIS
     Dosage: UNK
     Dates: start: 20100626, end: 20100716
  34. FOSCARNET SODIUM [Concomitant]
     Indication: ANTIVIRAL PROPHYLAXIS
     Dosage: UNK
     Dates: start: 20100626, end: 20100706
  35. PREDNISONE [Concomitant]
     Indication: GRAFT VERSUS HOST DISEASE
     Dosage: UNK
     Dates: start: 20100815

REACTIONS (4)
  - EPSTEIN-BARR VIRUS ASSOCIATED LYMPHOPROLIFERATIVE DISORDER [None]
  - CYTOMEGALOVIRUS TEST POSITIVE [None]
  - VIRAL HAEMORRHAGIC CYSTITIS [None]
  - SEPSIS [None]
